FAERS Safety Report 9496388 (Version 1)
Quarter: 2013Q3

REPORT INFORMATION
  Report Type: Spontaneous
  Country: US (occurrence: US)
  Receive Date: 20130904
  Receipt Date: 20130904
  Transmission Date: 20140515
  Serious: No
  Sender: FDA-Public Use
  Company Number: US-BAYER-2013-104213

PATIENT
  Age: 68 Year
  Sex: Female

DRUGS (1)
  1. AVELOX [Suspect]
     Indication: CYSTITIS

REACTIONS (2)
  - Insomnia [Recovered/Resolved]
  - Agitation [Recovered/Resolved]
